FAERS Safety Report 15371650 (Version 1)
Quarter: 2018Q3

REPORT INFORMATION
  Report Type: Spontaneous
  Country: ES (occurrence: ES)
  Receive Date: 20180911
  Receipt Date: 20180911
  Transmission Date: 20181010
  Serious: Yes (Life-Threatening, Hospitalization)
  Sender: FDA-Public Use
  Company Number: PHHY2018ES095710

PATIENT
  Age: 87 Year
  Sex: Female
  Weight: 61 kg

DRUGS (1)
  1. ZOMETA [Suspect]
     Active Substance: ZOLEDRONIC ACID
     Indication: OSTEOPOROTIC FRACTURE
     Dosage: 5 MG, UNK
     Route: 042
     Dates: start: 20180727, end: 20180727

REACTIONS (1)
  - Pancreatitis acute [Unknown]

NARRATIVE: CASE EVENT DATE: 20180804
